FAERS Safety Report 6262746-2 (Version None)
Quarter: 2009Q3

REPORT INFORMATION
  Report Type: 
  Country: None (occurrence: None)
  Receive Date: 20090709
  Receipt Date: 20090629
  Transmission Date: 20100115
  Serious: Yes (Hospitalization, Other)
  Sender: FDA-Public Use
  Company Number: US-ABBOTT-09P-163-0582422-00

PATIENT
  Sex: Female
  Weight: 72.64 kg

DRUGS (8)
  1. HUMIRA [Suspect]
     Indication: RHEUMATOID ARTHRITIS
     Dates: start: 20060101
  2. HUMIRA [Suspect]
     Dates: start: 20090628
  3. SULFAZINE [Concomitant]
     Indication: RHEUMATOID ARTHRITIS
  4. ULTRAM [Concomitant]
     Indication: PAIN
  5. PERCOCET [Concomitant]
     Indication: PAIN
  6. PREDNISON [Concomitant]
     Indication: RHEUMATOID ARTHRITIS
  7. CEPHALEXIN [Concomitant]
     Indication: URINARY TRACT INFECTION
  8. PRERAXIAM [Concomitant]
     Indication: RHEUMATOID ARTHRITIS

REACTIONS (4)
  - FALL [None]
  - UPPER LIMB FRACTURE [None]
  - URINARY TRACT INFECTION [None]
  - WRIST FRACTURE [None]
